FAERS Safety Report 8429398 (Version 2)
Quarter: 2012Q4

REPORT INFORMATION
  Report Type: 
  Country: US (occurrence: None)
  Receive Date: 20120215
  Receipt Date: 20120914
  Transmission Date: 20130627
  Serious: Yes (Other)
  Sender: FDA-Public Use
  Company Number: 2012AP000293

PATIENT
  Age: 37 Year
  Sex: Male

DRUGS (6)
  1. ALENDRONATE SODIUM [Suspect]
     Indication: OSTEOPOROSIS
     Dosage: 70 MG; QW
  2. AMIODARONE HYDROCHLORIDE [Suspect]
     Indication: ATRIAL FIBRILLATION
     Dosage: 200 MG; BID
  3. PREDNISONE [Suspect]
     Indication: SARCOIDOSIS
     Dosage: 30 MG; QD
  4. METOPROLOL [Suspect]
     Indication: HYPERTENSION
     Dosage: 50 MG; QD
  5. PANTOPRAZOLE SODIUM [Suspect]
     Indication: GASTROOESOPHAGEAL REFLUX DISEASE
  6. METHOTREXATE [Concomitant]

REACTIONS (7)
  - Vision blurred [None]
  - Halo vision [None]
  - Papilloedema [None]
  - Optic neuropathy [None]
  - Toxicity to various agents [None]
  - Arrhythmia [None]
  - Condition aggravated [None]
